FAERS Safety Report 14993885 (Version 1)
Quarter: 2018Q2

REPORT INFORMATION
  Report Type: Spontaneous
  Country: NL (occurrence: NL)
  Receive Date: 20180611
  Receipt Date: 20180611
  Transmission Date: 20180711
  Serious: Yes (Hospitalization)
  Sender: FDA-Public Use
  Company Number: NL-TEVA-2018-NL-904641

PATIENT
  Age: 83 Year
  Sex: Female

DRUGS (7)
  1. METHOTREXAAT 2,5MG [Concomitant]
     Dosage: 6 TABLETS
  2. COVERSYL 5MG [Concomitant]
     Dosage: 10 MILLIGRAM DAILY; 1DD2
     Route: 065
  3. BISOPROLOL 5MG [Concomitant]
     Route: 065
     Dates: start: 20180212
  4. RABEPRAZOLE [Suspect]
     Active Substance: RABEPRAZOLE
     Indication: BARRETT^S OESOPHAGUS
     Dosage: 20 MILLIGRAM DAILY; 1DD1
     Route: 065
     Dates: start: 20180221, end: 20180331
  5. FOLIUMZUUR [Concomitant]
     Active Substance: FOLIC ACID
     Dosage: 2XPER WEEK
     Route: 065
  6. PLENDIL 2,5MG [Concomitant]
     Route: 065
     Dates: start: 20180209
  7. ELIQUIS [Concomitant]
     Active Substance: APIXABAN
     Dosage: 2 TABLETS
     Dates: start: 201704

REACTIONS (3)
  - Gastrointestinal sounds abnormal [Recovered/Resolved]
  - Therapeutic response unexpected [Recovered/Resolved]
  - Faeces hard [Recovered/Resolved]

NARRATIVE: CASE EVENT DATE: 20180322
